FAERS Safety Report 4480886-5 (Version None)
Quarter: 2004Q4

REPORT INFORMATION
  Report Type: 
  Country: None (occurrence: None)
  Receive Date: 20041020
  Receipt Date: 20041020
  Transmission Date: 20050328
  Serious: No
  Sender: FDA-Public Use
  Company Number: None

PATIENT
  Age: 49 Year
  Sex: Female
  Weight: 68.18 kg

DRUGS (1)
  1. ANCEF [Suspect]
     Indication: INTERVERTEBRAL DISC DISORDER
     Dosage: 1 GM IV
     Route: 042
     Dates: start: 20040825

REACTIONS (4)
  - DYSPHAGIA [None]
  - DYSPNOEA [None]
  - PRURITUS GENERALISED [None]
  - RASH [None]
